FAERS Safety Report 8770962 (Version 2)
Quarter: 2012Q4

REPORT INFORMATION
  Report Type: 
  Country: JP (occurrence: JP)
  Receive Date: 20120906
  Receipt Date: 20120928
  Transmission Date: 20130627
  Serious: Yes (Other)
  Sender: FDA-Public Use
  Company Number: JP-PFIZER INC-2012217011

PATIENT
  Age: 70 Year
  Sex: Male

DRUGS (4)
  1. ATARAX-P [Suspect]
     Indication: PRURITUS
     Dosage: 75 mg, 1x/day
     Route: 048
  2. REMITCH [Suspect]
     Indication: PRURITUS
     Dosage: UNK
  3. MYSLEE [Suspect]
     Dosage: UNK
  4. TALION [Concomitant]
     Dosage: UNK

REACTIONS (3)
  - Delirium [Recovered/Resolved]
  - Hallucination [Recovered/Resolved]
  - Hallucination, visual [None]
